FAERS Safety Report 11055790 (Version 1)
Quarter: 2015Q2

REPORT INFORMATION
  Report Type: Spontaneous
  Country: US (occurrence: US)
  Receive Date: 20150422
  Receipt Date: 20150422
  Transmission Date: 20150821
  Serious: Yes (Other)
  Sender: FDA-Public Use
  Company Number: US-ASTRAZENECA-2015SE36750

PATIENT
  Age: 53 Year
  Sex: Female
  Weight: 65.8 kg

DRUGS (17)
  1. GENERIC BONIVA [Concomitant]
     Indication: BONE DISORDER
     Dosage: MONTHLY
     Dates: start: 201501
  2. VITAMIN D3 [Concomitant]
     Active Substance: CHOLECALCIFEROL
     Indication: VITAMIN SUPPLEMENTATION
     Dosage: 2000 INTERNATIONAL UNITS
     Dates: start: 2010
  3. MONTELUKAST SODIUM. [Concomitant]
     Active Substance: MONTELUKAST SODIUM
     Indication: SINUS DISORDER
     Dates: start: 201504
  4. LISINOPRIL. [Suspect]
     Active Substance: LISINOPRIL
     Indication: BLOOD PRESSURE ABNORMAL
     Route: 048
     Dates: start: 2007, end: 2014
  5. AZELASTINE HCL [Concomitant]
     Active Substance: AZELASTINE HYDROCHLORIDE
     Indication: MULTIPLE ALLERGIES
     Dates: start: 201504
  6. ASPIRIN. [Concomitant]
     Active Substance: ASPIRIN
     Indication: PROPHYLAXIS
     Dates: start: 2007
  7. FLONASE [Concomitant]
     Active Substance: FLUTICASONE PROPIONATE
     Indication: NASAL DISORDER
     Dosage: AS REQUIRED
     Dates: start: 2015
  8. NEXIUM [Suspect]
     Active Substance: ESOMEPRAZOLE MAGNESIUM
     Indication: DYSPEPSIA
     Route: 048
     Dates: start: 2005, end: 2014
  9. CITRICAL CALCIUM PLUS C3 [Concomitant]
     Indication: VITAMIN SUPPLEMENTATION
     Dosage: TO BE TAKEN TWICE DAILY BUT SHE ONLY TAKES IT ONCE DAILY
  10. LORATADINE. [Concomitant]
     Active Substance: LORATADINE
     Indication: SINUS DISORDER
     Dates: start: 201504
  11. OMEPRAZOLE. [Suspect]
     Active Substance: OMEPRAZOLE
     Indication: DYSPEPSIA
     Route: 048
     Dates: start: 201404
  12. MAGNESIUM [Concomitant]
     Active Substance: MAGNESIUM
     Indication: VITAMIN SUPPLEMENTATION
     Dates: start: 2010
  13. VITAMIN B COMPLEX WITH FOLIC ACID AND VITAMIN C [Concomitant]
     Indication: VITAMIN SUPPLEMENTATION
  14. ASPIRIN. [Concomitant]
     Active Substance: ASPIRIN
     Indication: PROPHYLAXIS
     Dates: start: 2007
  15. VASCEPA [Concomitant]
     Active Substance: ETHYL ICOSAPENTATE
     Indication: SUPPLEMENTATION THERAPY
  16. LOSARTAN POTASSIUM. [Concomitant]
     Active Substance: LOSARTAN POTASSIUM
     Indication: BLOOD PRESSURE ABNORMAL
     Dates: start: 2014
  17. FLONASE [Concomitant]
     Active Substance: FLUTICASONE PROPIONATE
     Indication: MULTIPLE ALLERGIES
     Dosage: AS REQUIRED
     Dates: start: 2015

REACTIONS (12)
  - Malaise [Unknown]
  - Sinusitis [Unknown]
  - Condition aggravated [Unknown]
  - Rotator cuff syndrome [Unknown]
  - Osteoporosis [Unknown]
  - Impaired work ability [Unknown]
  - Nasopharyngitis [Unknown]
  - Product use issue [Unknown]
  - Gastrooesophageal reflux disease [Unknown]
  - Body height decreased [Unknown]
  - Tinnitus [Unknown]
  - Depressed mood [Unknown]

NARRATIVE: CASE EVENT DATE: 2005
